FAERS Safety Report 11857605 (Version 1)
Quarter: 2015Q4

REPORT INFORMATION
  Report Type: Spontaneous
  Country: US (occurrence: None)
  Receive Date: 20151221
  Receipt Date: 20151221
  Transmission Date: 20160305
  Serious: No
  Sender: FDA-Public Use
  Company Number: None

PATIENT
  Age: 83 Year
  Sex: Female

DRUGS (11)
  1. ACEBUTOLOL [Concomitant]
     Active Substance: ACEBUTOLOL
  2. OXYCODONE AND ACETAMINOPHEN [Concomitant]
     Active Substance: ACETAMINOPHEN\OXYCODONE\OXYCODONE HYDROCHLORIDE
  3. OXYBUTYNIN [Concomitant]
     Active Substance: OXYBUTYNIN
  4. IBRANCE [Suspect]
     Active Substance: PALBOCICLIB
     Indication: NEOPLASM MALIGNANT
     Route: 048
     Dates: start: 20150623
  5. CALCIUM CITR [Concomitant]
  6. FELODIPINE. [Concomitant]
     Active Substance: FELODIPINE
  7. LORAZEPAM. [Concomitant]
     Active Substance: LORAZEPAM
  8. SYNTHROID [Concomitant]
     Active Substance: LEVOTHYROXINE SODIUM
  9. LETROZOLE. [Concomitant]
     Active Substance: LETROZOLE
  10. MEDROL [Concomitant]
     Active Substance: METHYLPREDNISOLONE
  11. SERTRALINE [Concomitant]
     Active Substance: SERTRALINE HYDROCHLORIDE

REACTIONS (2)
  - Pruritus [None]
  - Alopecia [None]

NARRATIVE: CASE EVENT DATE: 201511
